FAERS Safety Report 18951877 (Version 1)
Quarter: 2021Q1

REPORT INFORMATION
  Report Type: Spontaneous
  Country: US (occurrence: US)
  Receive Date: 20210301
  Receipt Date: 20210301
  Transmission Date: 20210420
  Serious: No
  Sender: FDA-Public Use
  Company Number: US-BRISTOL-MYERS SQUIBB COMPANY-BMS-2021-018856

PATIENT
  Age: 62 Year
  Sex: Female
  Weight: 81.64 kg

DRUGS (1)
  1. ELIQUIS [Suspect]
     Active Substance: APIXABAN
     Indication: THROMBOSIS PROPHYLAXIS
     Dosage: UNK, BID
     Route: 048
     Dates: start: 202102

REACTIONS (2)
  - Dysuria [Unknown]
  - Micturition urgency [Unknown]

NARRATIVE: CASE EVENT DATE: 202102
